FAERS Safety Report 8108443 (Version 7)
Quarter: 2012Q4

REPORT INFORMATION
  Report Type: 
  Country: CA (occurrence: CA)
  Receive Date: 20110826
  Receipt Date: 20121001
  Transmission Date: 20130627
  Serious: Yes (Hospitalization, Other)
  Sender: FDA-Public Use
  Company Number: CA-JNJFOC-20110809051

PATIENT
  Age: 62 Year
  Sex: Male
  Weight: 104.33 kg

DRUGS (3)
  1. REACTINE [Suspect]
     Indication: SNEEZING
     Route: 048
     Dates: start: 20110810, end: 20110810
  2. REACTINE [Suspect]
     Indication: SEASONAL ALLERGY
     Route: 048
     Dates: start: 20110810, end: 20110810
  3. HIGH BLOOD PRESSURE MEDICATION NOS [Concomitant]
     Indication: HYPERTENSION
     Route: 065

REACTIONS (4)
  - Transient ischaemic attack [Recovered/Resolved]
  - Transient global amnesia [Recovered/Resolved]
  - Agitation [Recovered/Resolved]
  - Product quality issue [Unknown]
